FAERS Safety Report 9009655 (Version 2)
Quarter: 2013Q1

REPORT INFORMATION
  Report Type: Spontaneous
  Country: TR (occurrence: TR)
  Receive Date: 20130110
  Receipt Date: 20130125
  Transmission Date: 20140127
  Serious: No
  Sender: FDA-Public Use
  Company Number: TR-SANOFI-AVENTIS-2013SA001015

PATIENT
  Age: 38 Year
  Sex: Female
  Weight: 48 kg

DRUGS (1)
  1. ARAVA [Suspect]
     Indication: SPONDYLITIS
     Route: 048
     Dates: start: 201205, end: 20121028

REACTIONS (1)
  - Exposure during pregnancy [Unknown]
